FAERS Safety Report 22322732 (Version 3)
Quarter: 2024Q1

REPORT INFORMATION
  Report Type: Report from Study
  Country: US (occurrence: US)
  Receive Date: 20230516
  Receipt Date: 20240120
  Transmission Date: 20240409
  Serious: Yes (Hospitalization, Other)
  Sender: FDA-Public Use
  Company Number: US-ABBVIE-4767037

PATIENT
  Sex: Male

DRUGS (7)
  1. VENCLEXTA [Suspect]
     Active Substance: VENETOCLAX
     Indication: Mantle cell lymphoma
     Dosage: 20MG X 7 DAYS?LAST ADMIN DATE- 2023
     Route: 048
     Dates: start: 20230202
  2. VENCLEXTA [Suspect]
     Active Substance: VENETOCLAX
     Indication: Mantle cell lymphoma
     Dosage: FORM STRENGTH: 100 MG?BOTH DOSE IN MORNING
     Route: 048
     Dates: start: 20231024
  3. VENCLEXTA [Suspect]
     Active Substance: VENETOCLAX
     Indication: Mantle cell lymphoma
     Dosage: END DATE 2023?FORM STRENGTH: 100 MG?ONE DOSE IN MORNING AND ANOTHER DOSE IN NIGHT
     Route: 048
     Dates: start: 20230401
  4. VENCLEXTA [Suspect]
     Active Substance: VENETOCLAX
     Indication: Mantle cell lymphoma
     Dosage: 50MG X 7 DAYS
     Route: 048
     Dates: start: 2023, end: 2023
  5. VENCLEXTA [Suspect]
     Active Substance: VENETOCLAX
     Indication: Mantle cell lymphoma
     Dosage: 100MG X 7 DAYS
     Route: 048
     Dates: start: 2023, end: 2023
  6. VENCLEXTA [Suspect]
     Active Substance: VENETOCLAX
     Indication: Mantle cell lymphoma
     Dosage: 200MG X 7 DAYS
     Route: 048
     Dates: start: 2023, end: 20230331
  7. BRUKINSA [Concomitant]
     Active Substance: ZANUBRUTINIB
     Indication: Mantle cell lymphoma
     Dates: start: 20220413

REACTIONS (7)
  - Neoplasm malignant [Unknown]
  - Diabetes mellitus [Unknown]
  - Single functional kidney [Unknown]
  - Splenomegaly [Recovered/Resolved]
  - Ingrowing nail [Unknown]
  - Cardiac disorder [Unknown]
  - Hospitalisation [Unknown]

NARRATIVE: CASE EVENT DATE: 20230101
